FAERS Safety Report 9896126 (Version 1)
Quarter: 2014Q1

REPORT INFORMATION
  Report Type: Spontaneous
  Country: US (occurrence: US)
  Receive Date: 20140213
  Receipt Date: 20140213
  Transmission Date: 20141002
  Serious: Yes (Other)
  Sender: FDA-Public Use
  Company Number: US-BRISTOL-MYERS SQUIBB COMPANY-19713130

PATIENT
  Age: 54 Year
  Sex: Female

DRUGS (12)
  1. ABATACEPT SUBQ INJECTION 125MG/ML [Suspect]
     Indication: RHEUMATOID ARTHRITIS
     Route: 058
  2. METHOTREXATE [Concomitant]
  3. CELEBREX [Concomitant]
  4. BENICAR [Concomitant]
  5. FOLIC ACID [Concomitant]
  6. MULTIVITAMIN [Concomitant]
  7. VITAMIN D [Concomitant]
  8. CALCIUM + VITAMIN D [Concomitant]
  9. BIOTIN [Concomitant]
  10. LEXAPRO [Concomitant]
  11. DENOSUMAB [Concomitant]
  12. HYDROCODONE [Concomitant]

REACTIONS (2)
  - Pneumonia [Unknown]
  - Arthritis [Unknown]
